FAERS Safety Report 12231022 (Version 1)
Quarter: 2016Q2

REPORT INFORMATION
  Report Type: Spontaneous
  Country: IT (occurrence: IT)
  Receive Date: 20160401
  Receipt Date: 20160401
  Transmission Date: 20160815
  Serious: Yes (Other)
  Sender: FDA-Public Use
  Company Number: IT-SA-2016SA062748

PATIENT
  Age: 62 Year
  Sex: Female

DRUGS (3)
  1. TERIFLUNOMIDE [Suspect]
     Active Substance: TERIFLUNOMIDE
     Indication: MULTIPLE SCLEROSIS
     Route: 048
     Dates: start: 20160205, end: 20160315
  2. OLPRESS [Concomitant]
     Active Substance: OLMESARTAN MEDOXOMIL
  3. TAPAZOLE [Concomitant]
     Active Substance: METHIMAZOLE
     Route: 048

REACTIONS (2)
  - Lymphopenia [Unknown]
  - Thrombocytopenia [Unknown]

NARRATIVE: CASE EVENT DATE: 20160222
